FAERS Safety Report 15884634 (Version 1)
Quarter: 2019Q1

REPORT INFORMATION
  Report Type: Spontaneous
  Country: IT (occurrence: IT)
  Receive Date: 20190129
  Receipt Date: 20190129
  Transmission Date: 20190417
  Serious: Yes (Other)
  Sender: FDA-Public Use
  Company Number: IT-PFIZER INC-2019034701

PATIENT
  Age: 64 Year
  Sex: Male
  Weight: 91 kg

DRUGS (5)
  1. XALKORI [Suspect]
     Active Substance: CRIZOTINIB
     Indication: LUNG ADENOCARCINOMA
     Dosage: 500 MG, 1X/DAY
     Route: 048
     Dates: start: 20180601
  2. COVERSYL [PERINDOPRIL ARGININE] [Concomitant]
     Active Substance: PERINDOPRIL ARGININE
     Dosage: UNK
  3. CARDICOR [Concomitant]
     Active Substance: BISOPROLOL
     Dosage: UNK
  4. ATORVASTATIN [Concomitant]
     Active Substance: ATORVASTATIN
     Dosage: UNK
  5. CARDIOASPIRIN [Concomitant]
     Active Substance: ASPIRIN
     Dosage: UNK

REACTIONS (2)
  - Gastrointestinal motility disorder [Recovering/Resolving]
  - Lymphoedema [Recovering/Resolving]

NARRATIVE: CASE EVENT DATE: 20181212
